FAERS Safety Report 8869152 (Version 1)
Quarter: 2012Q4

REPORT INFORMATION
  Report Type: 
  Country: US (occurrence: US)
  Receive Date: 20121023
  Receipt Date: 20121023
  Transmission Date: 20130627
  Serious: No
  Sender: FDA-Public Use
  Company Number: US-AMGEN-USASP2012054273

PATIENT
  Sex: Female
  Weight: 71.2 kg

DRUGS (1)
  1. ENBREL [Suspect]
     Indication: RHEUMATOID ARTHRITIS
     Dosage: 50 mg every seven days
     Route: 058

REACTIONS (3)
  - Tooth extraction [Unknown]
  - Injection site pain [Unknown]
  - Nasopharyngitis [Unknown]
